FAERS Safety Report 9617797 (Version 1)
Quarter: 2013Q4

REPORT INFORMATION
  Report Type: Spontaneous
  Country: US (occurrence: None)
  Receive Date: 20131009
  Receipt Date: 20131009
  Transmission Date: 20140711
  Serious: Yes (Other)
  Sender: FDA-Public Use
  Company Number: COL_12772_2012

PATIENT
  Age: 15 Year
  Sex: Female
  Weight: 57 kg

DRUGS (3)
  1. CHLORHEXIDINE GLUCONATE [Suspect]
     Dosage: 0.05%
     Route: 003
     Dates: start: 20121109, end: 20121109
  2. LIDOCAINE (LIDOCAINE) [Suspect]
     Dosage: 1% SUBDERMAL
     Dates: start: 20121109, end: 20121109
  3. NEXPLANON [Suspect]
     Route: 059
     Dates: start: 20121109

REACTIONS (3)
  - Angioedema [None]
  - Swollen tongue [None]
  - Lip swelling [None]
